FAERS Safety Report 9304048 (Version 1)
Quarter: 2013Q2

REPORT INFORMATION
  Report Type: Spontaneous
  Country: JP (occurrence: JP)
  Receive Date: 20130522
  Receipt Date: 20130522
  Transmission Date: 20140414
  Serious: Yes (Death, Hospitalization)
  Sender: FDA-Public Use
  Company Number: JP-BAYER-2013-059141

PATIENT
  Age: 68 Year
  Sex: Female

DRUGS (5)
  1. ACETYLSALICYLIC ACID({=100 MG) [Suspect]
     Indication: ANGINA PECTORIS
     Route: 048
  2. CLOPIDOGREL SULFATE [Interacting]
     Indication: ANGINA PECTORIS
     Route: 048
  3. HEPARIN SODIUM [Interacting]
  4. INSULIN [Concomitant]
     Indication: TYPE 2 DIABETES MELLITUS
  5. INSULIN [Concomitant]
     Indication: DIABETIC NEPHROPATHY

REACTIONS (9)
  - Gastrointestinal neoplasm [None]
  - Occult blood positive [None]
  - Cerebellar haemorrhage [None]
  - Depressed level of consciousness [None]
  - Respiratory disorder [None]
  - Cardiovascular disorder [None]
  - Death [Fatal]
  - Labelled drug-drug interaction medication error [None]
  - Labelled drug-drug interaction medication error [None]
